FAERS Safety Report 10902522 (Version 2)
Quarter: 2015Q3

REPORT INFORMATION
  Report Type: Spontaneous
  Country: US (occurrence: US)
  Receive Date: 20150310
  Receipt Date: 20150914
  Transmission Date: 20151125
  Serious: No
  Sender: FDA-Public Use
  Company Number: US-ENDO PHARMACEUTICALS INC.-AVEE20150036

PATIENT
  Age: 35 Year
  Sex: Male

DRUGS (1)
  1. AVEED [Suspect]
     Active Substance: TESTOSTERONE UNDECANOATE
     Indication: SECONDARY HYPOGONADISM
     Dosage: TOTAL OF 2.5 ML
     Route: 030
     Dates: start: 20141217

REACTIONS (7)
  - Injection site cellulitis [Unknown]
  - Injection site erythema [Unknown]
  - Injection site warmth [Unknown]
  - Underdose [Recovered/Resolved]
  - Injection site granuloma [Unknown]
  - Wrong technique in product usage process [Recovered/Resolved]
  - Injection site pain [Unknown]

NARRATIVE: CASE EVENT DATE: 20141217
